FAERS Safety Report 9540047 (Version 2)
Quarter: 2013Q4

REPORT INFORMATION
  Report Type: Report from Study
  Country: US (occurrence: US)
  Receive Date: 20130920
  Receipt Date: 20131017
  Transmission Date: 20140711
  Serious: Yes (Other)
  Sender: FDA-Public Use
  Company Number: US-US-EMD SERONO, INC.-7237724

PATIENT
  Age: 7 Year
  Sex: Female
  Weight: 38 kg

DRUGS (3)
  1. REBIF [Suspect]
     Indication: MULTIPLE SCLEROSIS
     Route: 058
     Dates: start: 20121207, end: 20130916
  2. REBIF [Suspect]
     Route: 058
     Dates: start: 20130917
  3. GABAPENTIN [Concomitant]
     Indication: PAIN
     Dates: start: 20120125

REACTIONS (1)
  - Pneumonia [Recovering/Resolving]
